FAERS Safety Report 25685396 (Version 1)
Quarter: 2025Q3

REPORT INFORMATION
  Report Type: Report from Study
  Country: EU (occurrence: EU)
  Receive Date: 20250815
  Receipt Date: 20250815
  Transmission Date: 20251021
  Serious: Yes (Hospitalization)
  Sender: ROCHE
  Company Number: EU-ROCHE-10000356009

PATIENT
  Age: 58 Year
  Sex: Female

DRUGS (4)
  1. RITUXIMAB [Suspect]
     Active Substance: RITUXIMAB
     Indication: Systemic lupus erythematosus
     Route: 065
  2. REMDESIVIR [Concomitant]
     Active Substance: REMDESIVIR
  3. NIRMATRELVIR [Concomitant]
     Active Substance: NIRMATRELVIR
  4. RITONAVIR [Concomitant]
     Active Substance: RITONAVIR

REACTIONS (2)
  - COVID-19 [Recovered/Resolved]
  - Off label use [Unknown]
